FAERS Safety Report 18272038 (Version 1)
Quarter: 2020Q3

REPORT INFORMATION
  Report Type: Spontaneous
  Country: FR (occurrence: FR)
  Receive Date: 20200916
  Receipt Date: 20200916
  Transmission Date: 20201103
  Serious: Yes (Death)
  Sender: FDA-Public Use
  Company Number: FR-CADILA HEALTHCARE LIMITED-FR-ZYDUS-030264

PATIENT

DRUGS (5)
  1. CHOLECALCIFEROL [Concomitant]
     Active Substance: CHOLECALCIFEROL
     Indication: DIABETES MELLITUS
  2. RAMIPRIL. [Concomitant]
     Active Substance: RAMIPRIL
  3. METFORMIN [Suspect]
     Active Substance: METFORMIN HYDROCHLORIDE
     Indication: DIABETES MELLITUS
     Dosage: 2550 MILLIGRAM,(INTERVAL :1 DAYS)
     Dates: end: 20180810
  4. CLOPIDOGREL W/ ACETYLSALICYLIC ACID [Concomitant]
     Active Substance: ASPIRIN\CLOPIDOGREL
  5. SIMVASTATINE [Concomitant]
     Active Substance: SIMVASTATIN

REACTIONS (6)
  - Diarrhoea [Recovered/Resolved]
  - Incorrect disposal of product [Recovering/Resolving]
  - Renal failure [Not Recovered/Not Resolved]
  - Coma [Not Recovered/Not Resolved]
  - Lactic acidosis [Recovered/Resolved]
  - Shock [Fatal]

NARRATIVE: CASE EVENT DATE: 20180810
